FAERS Safety Report 24031945 (Version 3)
Quarter: 2024Q3

REPORT INFORMATION
  Report Type: Spontaneous
  Country: JP (occurrence: JP)
  Receive Date: 20240629
  Receipt Date: 20240919
  Transmission Date: 20241017
  Serious: Yes (Other)
  Sender: EISAI
  Company Number: JP-Eisai-202403274_LEN_P_1

PATIENT
  Sex: Female

DRUGS (1)
  1. LENVIMA [Suspect]
     Active Substance: LENVATINIB
     Indication: Thyroid cancer
     Dosage: 5-DAY-ON AND 2-DAY-OFF SCHEDULE (WEEKDAYS ONLY).
     Route: 048

REACTIONS (3)
  - Deafness [Recovered/Resolved]
  - Ear discomfort [Recovered/Resolved]
  - Rhinorrhoea [Recovered/Resolved]
